FAERS Safety Report 24937457 (Version 1)
Quarter: 2025Q1

REPORT INFORMATION
  Report Type: Spontaneous
  Country: US (occurrence: None)
  Receive Date: 20250206
  Receipt Date: 20250206
  Transmission Date: 20250409
  Serious: Yes (Hospitalization)
  Sender: FDA-CTU
  Company Number: None

PATIENT
  Sex: Female

DRUGS (10)
  1. AMBRISENTAN [Suspect]
     Active Substance: AMBRISENTAN
     Indication: Pulmonary arterial hypertension
     Dosage: FREQUENCY : DAILY;?FREQ: TAKE 1 TABLET BY MOUTH DAILY FOR PULMONARY ARTERIAL HYPERTENSION?
     Route: 048
     Dates: start: 20210331
  2. D2000 ULTRA STRENGTH [Concomitant]
  3. ELIQUIS [Concomitant]
     Active Substance: APIXABAN
  4. IRON [Concomitant]
     Active Substance: IRON
  5. MUCINEX [Concomitant]
     Active Substance: GUAIFENESIN
  6. MUCINEX [Concomitant]
     Active Substance: GUAIFENESIN
  7. NICOTINE DIS [Concomitant]
  8. PANTOPRAZOLE INJ SOD [Concomitant]
  9. TYLENOL [Concomitant]
     Active Substance: ACETAMINOPHEN
  10. VITAMIN D [Concomitant]
     Active Substance: VITAMIN D NOS

REACTIONS (1)
  - Chronic obstructive pulmonary disease [None]
